FAERS Safety Report 9726034 (Version 2)
Quarter: 2013Q4

REPORT INFORMATION
  Report Type: Spontaneous
  Country: GB (occurrence: None)
  Receive Date: 20131127
  Receipt Date: 20131220
  Transmission Date: 20140711
  Serious: Yes (Death, Hospitalization)
  Sender: FDA-Public Use
  Company Number: AUR-APL-2013-09801

PATIENT
  Age: 74 Year
  Sex: Male

DRUGS (15)
  1. TERBINAFINE (TERBINAFINE) [Suspect]
     Indication: PRODUCT USED FOR UNKNOWN INDICATION
     Dosage: 250 MG (250 MG, 1 IN 1 D), ORAL
     Route: 048
  2. ASPIRIN (ACETYLSALICYLIC ACID) [Concomitant]
  3. BUDESONIDE [Concomitant]
  4. CALCEOS (LEKOVIT CA) [Concomitant]
  5. CO-CODAMOL(PANADEINE CO) [Concomitant]
  6. FLUCLOXACILLIN(FLUCLOXACILLIN) [Concomitant]
  7. LATANOPROST [Concomitant]
  8. OMEPRAZOLE(OMEPRAZOLE) [Concomitant]
  9. PEPPERMINT OIL(MENTHA X PIPERITA OIL) [Concomitant]
  10. PREDNISOLONE(PREDNISOLONE) [Concomitant]
  11. RISEDRONATE SODIUM(RISEDRONATE SODIUM) [Concomitant]
  12. SALBUTAMOL [Suspect]
  13. SIMVASTATIN(SIMVASTATIN) [Concomitant]
  14. TEMAZEPAM(TEMAZEPAM) [Concomitant]
  15. TEMAZEPAM(TEMAZEPAM) [Concomitant]

REACTIONS (4)
  - Acute generalised exanthematous pustulosis [None]
  - Staphylococcal infection [None]
  - Bacteraemia [None]
  - Sepsis [None]
